FAERS Safety Report 15246434 (Version 3)
Quarter: 2018Q3

REPORT INFORMATION
  Report Type: Spontaneous
  Country: BG (occurrence: BG)
  Receive Date: 20180806
  Receipt Date: 20180829
  Transmission Date: 20181010
  Serious: Yes (Other)
  Sender: FDA-Public Use
  Company Number: BG-PFIZER INC-2018312032

PATIENT
  Age: 60 Year
  Sex: Female

DRUGS (4)
  1. CYCLOPHOSPHAMIDE. [Suspect]
     Active Substance: CYCLOPHOSPHAMIDE
     Indication: PSORIATIC ARTHROPATHY
     Dosage: UNK
     Route: 065
  2. NEOTIGASON [Concomitant]
     Active Substance: ACITRETIN
     Indication: PSORIATIC ARTHROPATHY
     Dosage: 25 MG, 1X/DAY
     Route: 065
  3. METHOTREXATE SODIUM. [Suspect]
     Active Substance: METHOTREXATE SODIUM
     Indication: PSORIATIC ARTHROPATHY
     Dosage: UNK
     Route: 065
  4. MEDROL [Suspect]
     Active Substance: METHYLPREDNISOLONE
     Indication: PSORIATIC ARTHROPATHY
     Dosage: 20 MG, 1X/DAY
     Route: 065

REACTIONS (4)
  - Obstruction gastric [Unknown]
  - Iron deficiency anaemia [Unknown]
  - Gastric ulcer [Unknown]
  - Product use in unapproved indication [Unknown]
